FAERS Safety Report 20602027 (Version 1)
Quarter: 2022Q1

REPORT INFORMATION
  Report Type: Spontaneous
  Country: US (occurrence: None)
  Receive Date: 20220315
  Receipt Date: 20220315
  Transmission Date: 20220423
  Serious: Yes (unspecified)
  Sender: FDA-Public Use
  Company Number: None

PATIENT
  Age: 72 Year
  Sex: Male
  Weight: 101.1 kg

DRUGS (1)
  1. RITUXAN [Suspect]
     Active Substance: RITUXIMAB
     Indication: Diffuse large B-cell lymphoma
     Dosage: OTHER FREQUENCY : EVERY 21 DAYS;?
     Dates: start: 20220314

REACTIONS (6)
  - Infusion related reaction [None]
  - Chest discomfort [None]
  - Hypertension [None]
  - Oropharyngeal pain [None]
  - Pharyngeal paraesthesia [None]
  - Odynophagia [None]

NARRATIVE: CASE EVENT DATE: 20220314
